FAERS Safety Report 4865944-5 (Version None)
Quarter: 2005Q4

REPORT INFORMATION
  Report Type: 
  Country: None (occurrence: None)
  Receive Date: 20051226
  Receipt Date: 20051221
  Transmission Date: 20060501
  Serious: Yes (Death, Other)
  Sender: FDA-Public Use
  Company Number: PHBS2005JP18808

PATIENT
  Age: 72 Year
  Sex: Female

DRUGS (2)
  1. IMATINIB [Suspect]
     Indication: BLAST CRISIS IN MYELOGENOUS LEUKAEMIA
     Dosage: 400 MG/D
     Route: 048
     Dates: start: 20011207, end: 20020115
  2. IMATINIB [Suspect]
     Dosage: 200 MG/D
     Route: 048
     Dates: start: 20020213

REACTIONS (11)
  - BLOOD CALCIUM INCREASED [None]
  - BLOOD LACTATE DEHYDROGENASE INCREASED [None]
  - BONE PAIN [None]
  - CHROMOSOME ANALYSIS ABNORMAL [None]
  - FATIGUE [None]
  - MALIGNANT NEOPLASM PROGRESSION [None]
  - PANCYTOPENIA [None]
  - PARATHYROID HORMONE-RELATED PROTEIN INCREASED [None]
  - PLATELET COUNT DECREASED [None]
  - PYREXIA [None]
  - SKIN OEDEMA [None]
